FAERS Safety Report 7607007-1 (Version None)
Quarter: 2011Q3

REPORT INFORMATION
  Report Type: 
  Country: None (occurrence: None)
  Receive Date: 20110706
  Receipt Date: 20110621
  Transmission Date: 20111222
  Serious: No
  Sender: FDA-Public Use
  Company Number: 2011P1007129

PATIENT
  Age: 53 Year
  Sex: Male
  Weight: 95.2554 kg

DRUGS (2)
  1. UNKNOWN GLAUCOMA MEDICATION [Concomitant]
  2. ANTHELIOS 40 [Suspect]
     Indication: PROPHYLAXIS AGAINST SOLAR RADIATION
     Dosage: X1, TOP
     Route: 061
     Dates: start: 20110608, end: 20110608

REACTIONS (8)
  - CHILLS [None]
  - CHEMICAL INJURY [None]
  - SWELLING FACE [None]
  - SCAB [None]
  - PYREXIA [None]
  - SUNBURN [None]
  - DERMATITIS CONTACT [None]
  - NIGHT SWEATS [None]
